FAERS Safety Report 24610513 (Version 9)
Quarter: 2025Q3

REPORT INFORMATION
  Report Type: Report from Study
  Country: US (occurrence: US)
  Receive Date: 20241112
  Receipt Date: 20250724
  Transmission Date: 20251021
  Serious: Yes (Hospitalization, Other)
  Sender: SUNOVION
  Company Number: US-SUMITOMO PHARMA SWITZERLAND GMBH-2024SPA004847

PATIENT

DRUGS (3)
  1. ORGOVYX [Suspect]
     Active Substance: RELUGOLIX
     Indication: Prostate cancer
     Route: 048
  2. ORGOVYX [Suspect]
     Active Substance: RELUGOLIX
     Dosage: 120 MG, QD
     Route: 048
     Dates: start: 20241025
  3. ERLEADA [Concomitant]
     Active Substance: APALUTAMIDE
     Indication: Product used for unknown indication
     Route: 065

REACTIONS (28)
  - Syncope [Unknown]
  - Cervical vertebral fracture [Unknown]
  - Fall [Unknown]
  - Vertigo [Unknown]
  - Nephrolithiasis [Unknown]
  - Pyrexia [Unknown]
  - Dizziness [Unknown]
  - Diabetes mellitus [Unknown]
  - Thyroid hormones decreased [Unknown]
  - Renal function test abnormal [Unknown]
  - Weight decreased [Not Recovered/Not Resolved]
  - Erythema [Unknown]
  - Blood pressure diastolic decreased [Unknown]
  - Muscle atrophy [Unknown]
  - Nocturia [Unknown]
  - Pollakiuria [Unknown]
  - Testicular pain [Unknown]
  - Blood glucose decreased [Unknown]
  - Peripheral swelling [Unknown]
  - Vomiting [Unknown]
  - Asthenia [Unknown]
  - Diarrhoea [Unknown]
  - Haematocrit decreased [Unknown]
  - Red blood cell count decreased [Unknown]
  - Fatigue [Unknown]
  - Constipation [Unknown]
  - Incorrect dose administered [Unknown]
  - Therapy interrupted [Unknown]

NARRATIVE: CASE EVENT DATE: 20241230
